FAERS Safety Report 15428258 (Version 3)
Quarter: 2019Q1

REPORT INFORMATION
  Report Type: Spontaneous
  Country: FR (occurrence: FR)
  Receive Date: 20180926
  Receipt Date: 20190128
  Transmission Date: 20190417
  Serious: Yes (Hospitalization, Other)
  Sender: FDA-Public Use
  Company Number: FR-AUROBINDO-AUR-APL-2018-046992

PATIENT
  Age: 4 Year
  Sex: Female

DRUGS (2)
  1. TRAMADOL. [Suspect]
     Active Substance: TRAMADOL
     Indication: PROCEDURAL PAIN
     Dosage: UNK
     Route: 065
  2. CLONAZEPAM. [Concomitant]
     Active Substance: CLONAZEPAM
     Indication: PRODUCT USED FOR UNKNOWN INDICATION
     Dosage: UNK
     Route: 065

REACTIONS (11)
  - Toxicity to various agents [Recovered/Resolved]
  - Loss of consciousness [Recovered/Resolved]
  - Respiratory arrest [Recovered/Resolved]
  - Vaginal haemorrhage [Recovered/Resolved]
  - Seizure [Recovered/Resolved]
  - Pneumonia aspiration [Not Recovered/Not Resolved]
  - Overdose [Unknown]
  - Respiratory depth decreased [Recovered/Resolved with Sequelae]
  - Product use issue [Recovered/Resolved]
  - Accidental exposure to product by child [Unknown]
  - Coma scale abnormal [Unknown]
